FAERS Safety Report 8210990-7 (Version None)
Quarter: 2012Q1

REPORT INFORMATION
  Report Type: 
  Country: None (occurrence: None)
  Receive Date: 20120315
  Receipt Date: 20120307
  Transmission Date: 20120608
  Serious: Yes (Other)
  Sender: FDA-Public Use
  Company Number: US-BAYER-2012-023021

PATIENT
  Sex: Female

DRUGS (4)
  1. EFFEXOR [Concomitant]
     Indication: ANXIETY
     Dosage: UNK
     Dates: start: 20110101
  2. MIRENA [Suspect]
     Indication: CONTRACEPTION
     Dosage: 20 MCG/24HR, CONT
     Route: 015
     Dates: start: 20080201, end: 20100101
  3. MIRENA [Suspect]
     Dosage: 20 MCG/24HR, CONT
     Route: 015
     Dates: start: 20120201
  4. RISPERDAL [Suspect]
     Indication: ANXIETY
     Dosage: UNK
     Dates: start: 20100101, end: 20110101

REACTIONS (3)
  - GENITAL HAEMORRHAGE [None]
  - DYSPAREUNIA [None]
  - WEIGHT INCREASED [None]
